FAERS Safety Report 4901467-2 (Version None)
Quarter: 2006Q1

REPORT INFORMATION
  Report Type: 
  Country: None (occurrence: None)
  Receive Date: 20060206
  Receipt Date: 20060123
  Transmission Date: 20060701
  Serious: Yes (Other)
  Sender: FDA-Public Use
  Company Number: PHMT2006CA00567

PATIENT
  Age: 62 Year
  Sex: Female

DRUGS (1)
  1. ZOLEDRONIC ACID [Suspect]
     Indication: MULTIPLE MYELOMA
     Dosage: 4MG Q4WK
     Route: 042
     Dates: start: 20030701, end: 20050401

REACTIONS (4)
  - GINGIVITIS [None]
  - OSTEITIS [None]
  - TOOTH ABSCESS [None]
  - TOOTH EXTRACTION [None]
